FAERS Safety Report 16482609 (Version 1)
Quarter: 2019Q2

REPORT INFORMATION
  Report Type: Spontaneous
  Country: BE (occurrence: BE)
  Receive Date: 20190627
  Receipt Date: 20190627
  Transmission Date: 20190711
  Serious: Yes (Other)
  Sender: FDA-Public Use
  Company Number: PHHY2019BE145799

PATIENT
  Age: 45 Year
  Sex: Male

DRUGS (2)
  1. ZYPADHERA [Suspect]
     Active Substance: OLANZAPINE PAMOATE
     Indication: PRODUCT USED FOR UNKNOWN INDICATION
     Dosage: 405 MG, Q4W (405 MG, EVERY 4 WEEKS, IN RIGHT BUTTOCK)
     Route: 030
  2. OLANZAPINE. [Suspect]
     Active Substance: OLANZAPINE
     Indication: PRODUCT USED FOR UNKNOWN INDICATION
     Dosage: UNK UNK, QD
     Route: 048

REACTIONS (8)
  - Confusional state [Recovered/Resolved]
  - Seizure [Recovered/Resolved]
  - Fear [Recovered/Resolved]
  - Tachycardia [Recovered/Resolved]
  - Ataxia [Recovered/Resolved]
  - Hypertension [Recovered/Resolved]
  - Agitation [Recovered/Resolved]
  - Post-injection delirium sedation syndrome [Recovered/Resolved]

NARRATIVE: CASE EVENT DATE: 20190514
